FAERS Safety Report 10933260 (Version 1)
Quarter: 2015Q1

REPORT INFORMATION
  Report Type: Report from Study
  Country: NZ (occurrence: NZ)
  Receive Date: 20150320
  Receipt Date: 20150320
  Transmission Date: 20150721
  Serious: Yes (Other)
  Sender: FDA-Public Use
  Company Number: NZ-ROCHE-1553273

PATIENT
  Sex: Male

DRUGS (3)
  1. METHOTREXATE [Suspect]
     Active Substance: METHOTREXATE
     Indication: MALIGNANT LYMPHOID NEOPLASM
     Dosage: DATE OF LAST DOSE PRIOR TO SAE: 24/FEB/2015
     Route: 065
     Dates: start: 20150224
  2. RITUXIMAB [Suspect]
     Active Substance: RITUXIMAB
     Indication: MALIGNANT LYMPHOID NEOPLASM
     Dosage: DATE OF LAST DOSE PRIOR TO SAE: 23/FEB/2015
     Route: 042
     Dates: start: 20150223
  3. CARMUSTINE [Suspect]
     Active Substance: CARMUSTINE
     Indication: MALIGNANT LYMPHOID NEOPLASM
     Dosage: DATE OF LAST DOSE PRIOR TO SAE: 27/FEB/2015
     Route: 065
     Dates: start: 20150227

REACTIONS (1)
  - Memory impairment [Recovered/Resolved]
